FAERS Safety Report 4891433-8 (Version None)
Quarter: 2005Q4

REPORT INFORMATION
  Report Type: 
  Country: None (occurrence: None)
  Receive Date: 20051220
  Receipt Date: 20050829
  Transmission Date: 20060501
  Serious: Yes (Other)
  Sender: FDA-Public Use
  Company Number: 415991

PATIENT
  Age: 68 Year
  Sex: Female
  Weight: 84.8 kg

DRUGS (6)
  1. BONIVA [Suspect]
     Indication: OSTEOPOROSIS
     Dosage: 150 MG 1 PER MONTH ORAL
     Route: 048
     Dates: start: 20050812
  2. HCTZ (HYDROCHLOROTHIAZIDE) [Concomitant]
  3. LOPRESSOR [Concomitant]
  4. CITRACAL (CALCIUM CITRATE) [Concomitant]
  5. MULTIVITAMIN [Concomitant]
  6. VITAMIN D [Concomitant]

REACTIONS (1)
  - BACK PAIN [None]
